FAERS Safety Report 12384592 (Version 1)
Quarter: 2016Q2

REPORT INFORMATION
  Report Type: Spontaneous
  Country: US (occurrence: None)
  Receive Date: 20160518
  Receipt Date: 20160518
  Transmission Date: 20160815
  Serious: Yes (Other)
  Sender: FDA-Public Use
  Company Number: None

PATIENT
  Age: 50 Year
  Sex: Male
  Weight: 81.65 kg

DRUGS (1)
  1. ZOLPIDEM ER, 12.5 MG [Suspect]
     Active Substance: ZOLPIDEM TARTRATE
     Indication: SLEEP DISORDER THERAPY
     Route: 048
     Dates: start: 20160516, end: 20160516

REACTIONS (7)
  - Abnormal sleep-related event [None]
  - Hangover [None]
  - Somnambulism [None]
  - Memory impairment [None]
  - Sleep talking [None]
  - Product substitution issue [None]
  - Dyssomnia [None]

NARRATIVE: CASE EVENT DATE: 20160516
